FAERS Safety Report 20755418 (Version 7)
Quarter: 2023Q4

REPORT INFORMATION
  Report Type: Other
  Country: CN (occurrence: None)
  Receive Date: 20220427
  Receipt Date: 20231109
  Transmission Date: 20240110
  Serious: Yes (Hospitalization, Other)
  Sender: FDA-Public Use
  Company Number: CN-ROCHE-2062618

PATIENT
  Age: 60 Year
  Sex: Female
  Weight: 50 kg

DRUGS (6)
  1. AVASTIN [Suspect]
     Active Substance: BEVACIZUMAB
     Indication: Intestinal adenocarcinoma
     Dosage: FORM OF ADMIN: 100 MG
     Route: 041
     Dates: start: 20160817, end: 20190528
  2. AVASTIN [Suspect]
     Active Substance: BEVACIZUMAB
     Indication: Colorectal cancer
     Dosage: FORM OF ADMIN: 100 MG
     Route: 041
     Dates: end: 20200915
  3. AVASTIN [Suspect]
     Active Substance: BEVACIZUMAB
     Dosage: FORM OF ADMIN: 100 MG
     Route: 041
     Dates: end: 20210223
  4. AVASTIN [Suspect]
     Active Substance: BEVACIZUMAB
     Dosage: FORM OF ADMIN: 100 MG
     Route: 041
     Dates: end: 20220301
  5. AVASTIN [Suspect]
     Active Substance: BEVACIZUMAB
     Dosage: FORM OF ADMIN: 100 MG
     Route: 041
     Dates: end: 20220712
  6. AVASTIN [Suspect]
     Active Substance: BEVACIZUMAB
     Dosage: FORM OF ADMIN: 100 MG
     Route: 041
     Dates: end: 20230530

REACTIONS (13)
  - Goitre [Unknown]
  - Platelet count decreased [Recovered/Resolved]
  - White blood cell count decreased [Recovered/Resolved]
  - Transaminases increased [Unknown]
  - Protein urine present [Unknown]
  - Device failure [Unknown]
  - Hypertension [Recovered/Resolved]
  - Blood pressure increased [Unknown]
  - Coronavirus test positive [Unknown]
  - Blood pressure increased [Recovering/Resolving]
  - Transaminases increased [Unknown]
  - Blood bilirubin increased [Unknown]
  - Hepatic neoplasm [Not Recovered/Not Resolved]

NARRATIVE: CASE EVENT DATE: 20181213
